FAERS Safety Report 7286330-7 (Version None)
Quarter: 2011Q1

REPORT INFORMATION
  Report Type: 
  Country: None (occurrence: None)
  Receive Date: 20110126
  Receipt Date: 20110118
  Transmission Date: 20110831
  Serious: Yes (Death, Hospitalization)
  Sender: FDA-Public Use
  Company Number: 2009AC000339

PATIENT
  Age: 80 Year
  Sex: Male
  Weight: 72.5755 kg

DRUGS (12)
  1. ALDACTONE [Concomitant]
  2. FUROSEMIDE [Concomitant]
  3. POTASSIUM [Concomitant]
  4. SPIRONOLACTONE [Concomitant]
  5. HALDOL [Concomitant]
  6. DIGOXIN [Suspect]
     Dosage: 0.125 MG;QD;PO
     Route: 048
     Dates: start: 19910605, end: 20080129
  7. DOBUTAMINE HCL [Concomitant]
  8. ARICEPT [Concomitant]
  9. COREG [Concomitant]
  10. ZAROXOLYN [Concomitant]
  11. CAPOTEN [Concomitant]
  12. ZITHROMYCIN [Concomitant]

REACTIONS (43)
  - ECONOMIC PROBLEM [None]
  - CARDIAC MURMUR [None]
  - FALL [None]
  - VENTRICULAR TACHYCARDIA [None]
  - BLOOD CREATINE PHOSPHOKINASE MB INCREASED [None]
  - PULMONARY VALVE INCOMPETENCE [None]
  - LOBAR PNEUMONIA [None]
  - ANAEMIA [None]
  - BRONCHITIS [None]
  - INTERNATIONAL NORMALISED RATIO INCREASED [None]
  - HEPATIC ENZYME INCREASED [None]
  - CEREBRAL ATROPHY [None]
  - MENTAL STATUS CHANGES [None]
  - GAIT DISTURBANCE [None]
  - VENTRICULAR EXTRASYSTOLES [None]
  - ARTERIOSCLEROSIS [None]
  - AORTIC VALVE INCOMPETENCE [None]
  - INJURY [None]
  - DEHYDRATION [None]
  - CONFUSIONAL STATE [None]
  - DEMENTIA [None]
  - WEIGHT DECREASED [None]
  - HALLUCINATION [None]
  - ARTERIOSCLEROSIS CORONARY ARTERY [None]
  - HYPOTENSION [None]
  - DYSPHAGIA [None]
  - AGGRESSION [None]
  - TRICUSPID VALVE INCOMPETENCE [None]
  - VISUAL IMPAIRMENT [None]
  - SUPRAVENTRICULAR EXTRASYSTOLES [None]
  - VOMITING [None]
  - DECREASED APPETITE [None]
  - ARRHYTHMIA [None]
  - ABDOMINAL TENDERNESS [None]
  - CARDIAC FAILURE CONGESTIVE [None]
  - HALLUCINATION, VISUAL [None]
  - INSOMNIA [None]
  - VASCULAR DEMENTIA [None]
  - SINUS DISORDER [None]
  - CORONARY ARTERY DISEASE [None]
  - MITRAL VALVE INCOMPETENCE [None]
  - PULMONARY HYPERTENSION [None]
  - BUNDLE BRANCH BLOCK LEFT [None]
